FAERS Safety Report 13465973 (Version 1)
Quarter: 2017Q2

REPORT INFORMATION
  Report Type: Report from Study
  Country: US (occurrence: US)
  Receive Date: 20170421
  Receipt Date: 20170421
  Transmission Date: 20170830
  Serious: Yes (Other)
  Sender: FDA-Public Use
  Company Number: US-AMGEN-USASL2017059748

PATIENT
  Age: 78 Year
  Sex: Male

DRUGS (1)
  1. PROLIA [Suspect]
     Active Substance: DENOSUMAB
     Indication: BLADDER NEOPLASM
     Dosage: UNK
     Route: 065

REACTIONS (2)
  - Unevaluable event [Unknown]
  - Off label use [Unknown]

NARRATIVE: CASE EVENT DATE: 20170417
